FAERS Safety Report 9693264 (Version 1)
Quarter: 2013Q4

REPORT INFORMATION
  Report Type: Report from Study
  Country: US (occurrence: US)
  Receive Date: 20131118
  Receipt Date: 20131118
  Transmission Date: 20140711
  Serious: Yes (Hospitalization, Disabling)
  Sender: FDA-Public Use
  Company Number: US-ROCHE-1301201

PATIENT
  Age: 53 Year
  Sex: Female

DRUGS (10)
  1. AVASTIN [Suspect]
     Indication: BREAST CANCER FEMALE
     Route: 042
     Dates: start: 20110531
  2. XELODA [Suspect]
     Indication: BREAST CANCER FEMALE
     Dosage: TAKE 14 OF 21 DAYS
     Route: 048
     Dates: start: 20101109
  3. XELODA [Suspect]
     Dosage: BEGINNING CYCLE 2.
     Route: 048
  4. XELODA [Suspect]
     Route: 048
     Dates: start: 20110531
  5. PROTONIX (UNITED STATES) [Concomitant]
     Route: 048
  6. DILANTIN [Concomitant]
     Route: 048
  7. DEXAMETHASONE [Concomitant]
     Route: 065
  8. ZOFRAN [Concomitant]
     Dosage: PRN
     Route: 065
  9. ZYRTEC [Concomitant]
     Dosage: PRN
     Route: 065
  10. KLOR-CON [Concomitant]
     Route: 048

REACTIONS (14)
  - Convulsion [Unknown]
  - Asthenia [Unknown]
  - Fatigue [Unknown]
  - Febrile neutropenia [Unknown]
  - Influenza [Unknown]
  - Abasia [Unknown]
  - Neutropenia [Unknown]
  - Epigastric discomfort [Unknown]
  - Dyspnoea [Unknown]
  - Headache [Unknown]
  - Diplopia [Unknown]
  - Vomiting [Unknown]
  - Cough [Unknown]
  - Wound [Unknown]
